FAERS Safety Report 7367577-8 (Version None)
Quarter: 2011Q1

REPORT INFORMATION
  Report Type: 
  Country: None (occurrence: None)
  Receive Date: 20110322
  Receipt Date: 20110321
  Transmission Date: 20110831
  Serious: Yes (Other)
  Sender: FDA-Public Use
  Company Number: US-AMGEN-USASP2011009048

PATIENT
  Age: 41 Year
  Sex: Male
  Weight: 100.68 kg

DRUGS (8)
  1. REGLAN [Concomitant]
  2. DAPSONE [Concomitant]
  3. PLATELETS [Concomitant]
  4. CORTICOSTEROIDS [Concomitant]
  5. NORVIR [Concomitant]
  6. METHADONE HCL [Concomitant]
  7. NPLATE [Suspect]
     Indication: IDIOPATHIC THROMBOCYTOPENIC PURPURA
     Dosage: UNK
     Dates: start: 20101005, end: 20110201
  8. OXYCODONE [Concomitant]

REACTIONS (2)
  - THERAPEUTIC RESPONSE DECREASED [None]
  - THROMBOCYTOPENIA [None]
